FAERS Safety Report 20477763 (Version 1)
Quarter: 2022Q1

REPORT INFORMATION
  Report Type: Report from Study
  Country: CA (occurrence: CA)
  Receive Date: 20220216
  Receipt Date: 20220216
  Transmission Date: 20220424
  Serious: Yes (Other)
  Sender: FDA-Public Use
  Company Number: CA-SAMSUNG BIOEPIS-SB-2022-03644

PATIENT
  Age: 81 Year
  Sex: Female

DRUGS (1)
  1. HADLIMA [Suspect]
     Active Substance: ADALIMUMAB-BWWD
     Indication: Rheumatoid arthritis
     Route: 065
     Dates: start: 20211117

REACTIONS (4)
  - Immunosuppression [Unknown]
  - Pain [Not Recovered/Not Resolved]
  - Joint prosthesis user [Unknown]
  - Mobility decreased [Unknown]
